FAERS Safety Report 14926300 (Version 1)
Quarter: 2018Q2

REPORT INFORMATION
  Report Type: Spontaneous
  Country: US (occurrence: US)
  Receive Date: 20180523
  Receipt Date: 20180523
  Transmission Date: 20180711
  Serious: No
  Sender: FDA-Public Use
  Company Number: US-SHIRE-US201819469

PATIENT
  Sex: Female

DRUGS (3)
  1. GENTEAL MILD [Concomitant]
     Active Substance: HYPROMELLOSE 2910 (4000 MPA.S)
     Indication: DACRYOSTENOSIS CONGENITAL
  2. CLEAR EYES [Concomitant]
     Active Substance: NAPHAZOLINE HYDROCHLORIDE
     Indication: DACRYOSTENOSIS CONGENITAL
  3. XIIDRA [Suspect]
     Active Substance: LIFITEGRAST
     Indication: DRY EYE
     Route: 047

REACTIONS (4)
  - Vision blurred [Unknown]
  - Instillation site reaction [Unknown]
  - Drug ineffective [Unknown]
  - Instillation site pain [Unknown]
